FAERS Safety Report 7951332-1 (Version None)
Quarter: 2011Q4

REPORT INFORMATION
  Report Type: 
  Country: None (occurrence: None)
  Receive Date: 20111201
  Receipt Date: 20111121
  Transmission Date: 20120403
  Serious: Yes (Hospitalization)
  Sender: FDA-Public Use
  Company Number: US-CELGENEUS-CA023-06-0549

PATIENT
  Sex: Female
  Weight: 69.5 kg

DRUGS (81)
  1. BEVACIZUMAB [Suspect]
     Route: 041
     Dates: start: 20061026, end: 20061116
  2. OXYGEN [Concomitant]
     Indication: PNEUMONIA
  3. NPH INSULIN [Concomitant]
     Dosage: VARIABLE
     Route: 058
     Dates: start: 20061116
  4. NPH INSULIN [Concomitant]
     Route: 058
     Dates: start: 20061116
  5. NPH INSULIN [Concomitant]
     Route: 058
     Dates: start: 20061116
  6. INSULIN ASPART [Concomitant]
     Dosage: VARIABLE
     Route: 058
     Dates: start: 20061113
  7. CAPECITABINE [Concomitant]
     Route: 048
     Dates: start: 20070109
  8. INFLUENZA VIRUS VACCINE [Concomitant]
     Indication: INFLUENZA
     Route: 030
     Dates: start: 20061212
  9. ACETAMINOPHEN [Concomitant]
     Route: 048
     Dates: start: 20061110
  10. OLANZAPINE [Concomitant]
     Route: 048
     Dates: start: 20061104
  11. DULOXETINE HYDROCHLORIDE [Concomitant]
     Route: 048
     Dates: start: 20061103
  12. METFORMIN HCL [Concomitant]
     Route: 048
     Dates: start: 20061115
  13. NPH INSULIN [Concomitant]
     Route: 058
     Dates: start: 20061114
  14. INSULIN [Concomitant]
     Dosage: VARIABLE
     Route: 058
     Dates: start: 20061114
  15. LEVAQUIN [Concomitant]
     Indication: PNEUMONIA
     Route: 048
     Dates: start: 20061107
  16. POLYSACCHARIDE-IRON COMPLEX [Concomitant]
     Route: 048
     Dates: start: 20061116
  17. POLYETHYLENE GLYCOL [Concomitant]
     Route: 048
     Dates: start: 20061113
  18. ESOMEPRAZOLE MAGNESIUM [Concomitant]
     Route: 048
     Dates: start: 20061111
  19. METOCLOPRAMIDE HCI [Concomitant]
     Route: 041
  20. ZOLPIDEM TARTRATE [Concomitant]
     Route: 048
     Dates: start: 20061103
  21. SENNOSIDE A+B [Concomitant]
     Route: 048
     Dates: start: 20061010
  22. NPH INSULIN [Concomitant]
     Route: 058
     Dates: start: 20061114
  23. TINZAPARIN [Concomitant]
     Route: 058
     Dates: start: 20061103
  24. CALCIUM CARBONATE [Concomitant]
     Route: 046
     Dates: start: 20061105
  25. HYDROCHLOROTHIAZIDE [Concomitant]
     Route: 048
     Dates: start: 20061130
  26. BISACODYL [Concomitant]
     Route: 054
     Dates: start: 20061114
  27. SENNOSIDE A+B [Concomitant]
     Indication: PAIN
     Dosage: 2 TABLETS
     Route: 048
     Dates: start: 20061014, end: 20061113
  28. INSULIN [Concomitant]
     Route: 058
     Dates: start: 20061114
  29. PROPACET 100 [Concomitant]
     Indication: PAIN
     Route: 048
     Dates: start: 20061014
  30. NEXIUM [Concomitant]
     Indication: ANTACID THERAPY
  31. LEVAQUIN [Concomitant]
     Route: 041
     Dates: start: 20061103
  32. HYDROCHLOROTHIAZIDE [Concomitant]
     Route: 048
     Dates: start: 20061107
  33. ESOMEPRAZOLE MAGNESIUM [Concomitant]
     Route: 048
     Dates: start: 20061103
  34. ATORVASTATIN [Concomitant]
     Route: 048
     Dates: start: 20061103
  35. INSULIN ASPART [Concomitant]
     Route: 058
     Dates: start: 20061115
  36. PROPOXYPHENE NAPSYLATE AND ACETAMINOPHEN [Concomitant]
     Dosage: 1 TABLET PER DOSE
     Route: 048
     Dates: start: 20061014
  37. TINZAPARIN [Concomitant]
     Route: 058
     Dates: start: 20061105
  38. SODIUM PHOSPHATE [Concomitant]
     Route: 041
     Dates: start: 20061105
  39. CAPECITABINE [Concomitant]
     Route: 048
     Dates: start: 20061212
  40. IBUPROFEN [Concomitant]
     Route: 048
     Dates: start: 20061109
  41. LORAZEPAM [Concomitant]
     Route: 041
     Dates: start: 20061105
  42. DIPHENHYDRAMINE HCL [Concomitant]
     Route: 048
     Dates: start: 20061105
  43. ZOLPIDEM TARTRATE [Concomitant]
     Route: 048
     Dates: start: 20061103
  44. SENNOSIDE A+B [Concomitant]
     Route: 048
     Dates: start: 20061103
  45. SENNOSIDE A+B [Concomitant]
     Route: 048
     Dates: start: 20061014
  46. METFORMIN HCL [Concomitant]
     Route: 048
     Dates: start: 20061116
  47. ACTONEL [Concomitant]
     Indication: OSTEOPOROSIS
  48. GUAIFENESIN [Concomitant]
     Route: 048
     Dates: start: 20061105
  49. OLANZAPINE [Concomitant]
     Route: 048
     Dates: start: 20061105
  50. DIPHENHYDRAMINE HCL [Concomitant]
     Route: 041
     Dates: start: 20061103
  51. PERCOCET [Concomitant]
     Indication: PAIN
     Route: 048
     Dates: start: 20061114
  52. COLACE [Concomitant]
     Route: 048
     Dates: start: 20061111
  53. TINZAPARIN [Concomitant]
     Route: 058
     Dates: start: 20061104
  54. SODIUM PHOSPHATE [Concomitant]
     Route: 041
     Dates: start: 20061113
  55. AVALIDE [Concomitant]
     Indication: HYPERTENSION
  56. CRESTOR [Concomitant]
  57. PROCHLORPERAZINE MALEATE [Concomitant]
     Route: 048
     Dates: start: 20061103
  58. GUAIFENESIN [Concomitant]
     Route: 048
     Dates: start: 20061115
  59. POLYETHYLENE GLYCOL [Concomitant]
     Route: 048
     Dates: start: 20061114
  60. AMINODIPINE BESYLATE [Concomitant]
     Route: 048
     Dates: start: 20061111
  61. AMINODIPINE BESYLATE [Concomitant]
     Route: 048
     Dates: start: 20061103
  62. ATORVASTATIN [Concomitant]
     Route: 048
     Dates: start: 20061111
  63. ATORVASTATIN [Concomitant]
     Route: 048
     Dates: start: 20061107
  64. ACETAMINOPHEN [Concomitant]
     Route: 048
     Dates: start: 20061107
  65. ABRAXANE [Suspect]
     Route: 041
     Dates: start: 20061026, end: 20061116
  66. NEUPOGEN [Suspect]
     Indication: COLONY STIMULATING FACTOR PROPHYLAXIS
     Route: 058
     Dates: start: 20061027
  67. METFORMIN HCL [Concomitant]
     Route: 048
     Dates: start: 20061116
  68. NPH INSULIN [Concomitant]
     Route: 058
     Dates: start: 20061115
  69. INSULIN [Concomitant]
     Route: 058
     Dates: start: 20061113
  70. COLACE [Concomitant]
     Indication: CONSTIPATION
     Route: 048
     Dates: start: 20061114
  71. TINZAPARIN [Concomitant]
     Indication: PROPHYLAXIS
     Route: 058
     Dates: start: 20061111
  72. CYMBALTA [Concomitant]
     Indication: DEPRESSION
  73. LEVAQUIN [Concomitant]
     Route: 041
     Dates: start: 20061102
  74. PROCHLORPERAZINE MALEATE [Concomitant]
     Route: 048
     Dates: start: 20070109
  75. HYDROCHLOROTHIAZIDE [Concomitant]
     Route: 048
     Dates: start: 20061103
  76. POLYETHYLENE GLYCOL [Concomitant]
     Route: 048
     Dates: start: 20061114
  77. ESOMEPRAZOLE MAGNESIUM [Concomitant]
     Route: 048
     Dates: start: 20061114
  78. DARBEPOETIN ALFA [Concomitant]
     Route: 058
  79. AMINODIPINE BESYLATE [Concomitant]
     Route: 048
     Dates: start: 20061107
  80. ACETAMINOPHEN [Concomitant]
     Route: 048
     Dates: start: 20061103
  81. DEXTROSE 5% AND SODIUM CHLORIDE 0.45% IN PLASTIC CONTAINER [Concomitant]
     Route: 041
     Dates: start: 20061103

REACTIONS (1)
  - POLYARTHRITIS [None]
